FAERS Safety Report 9579527 (Version 2)
Quarter: 2013Q4

REPORT INFORMATION
  Report Type: Spontaneous
  Country: US (occurrence: US)
  Receive Date: 20131001
  Receipt Date: 20131001
  Transmission Date: 20140711
  Serious: No
  Sender: FDA-Public Use
  Company Number: US-AMGEN-USASP2013015882

PATIENT
  Age: 64 Year
  Sex: Female
  Weight: 65.76 kg

DRUGS (8)
  1. ENBREL [Suspect]
     Indication: PSORIASIS
     Dosage: 50 MG, 2 TIMES/WK
     Route: 058
     Dates: start: 20130207
  2. CEFDINIR [Concomitant]
     Dosage: 300 MG, UNK
  3. HYDROCHLOROTH [Concomitant]
     Dosage: 25 MG, UNK
  4. ALPRAZOLAM [Concomitant]
     Dosage: 0.25 MG, UNK
  5. ATORVASTATIN [Concomitant]
     Dosage: 10 MG, UNK
  6. FOLIC ACID [Concomitant]
     Dosage: UNK
  7. POTASSIUM CHLORIDE [Concomitant]
     Dosage: 10 MEQ, UNK
  8. COQ-10 [Concomitant]
     Dosage: UNK

REACTIONS (1)
  - Sinusitis [Recovered/Resolved]
